FAERS Safety Report 24932891 (Version 3)
Quarter: 2025Q2

REPORT INFORMATION
  Report Type: Report from Study
  Country: US (occurrence: US)
  Receive Date: 20250205
  Receipt Date: 20250429
  Transmission Date: 20250717
  Serious: Yes (Death, Other)
  Sender: BIOGEN
  Company Number: US-BIOGEN-2025BI01299203

PATIENT
  Age: 63 Year
  Sex: Male

DRUGS (1)
  1. TYSABRI [Suspect]
     Active Substance: NATALIZUMAB
     Indication: Multiple sclerosis
     Route: 050
     Dates: start: 20191023, end: 20241114

REACTIONS (4)
  - Shock [Fatal]
  - Squamous cell carcinoma of the tongue [Unknown]
  - Pulmonary embolism [Unknown]
  - Human papilloma virus test positive [Unknown]

NARRATIVE: CASE EVENT DATE: 20240801
